FAERS Safety Report 8583461-6 (Version None)
Quarter: 2012Q3

REPORT INFORMATION
  Report Type: 
  Country: None (occurrence: None)
  Receive Date: 20120809
  Receipt Date: 20120803
  Transmission Date: 20120928
  Serious: Yes (Other)
  Sender: FDA-Public Use
  Company Number: US-BAYER-2012-079935

PATIENT
  Age: 33 Year
  Sex: Female

DRUGS (1)
  1. MIRENA [Suspect]
     Indication: CONTRACEPTION
     Dosage: 20 MCG/24HR, CONT
     Dates: start: 20120727

REACTIONS (4)
  - PROCEDURAL PAIN [None]
  - DEVICE DISLOCATION [None]
  - POST PROCEDURAL HAEMORRHAGE [None]
  - UTERINE PERFORATION [None]
